FAERS Safety Report 8069281-X (Version None)
Quarter: 2012Q1

REPORT INFORMATION
  Report Type: 
  Country: None (occurrence: None)
  Receive Date: 20120117
  Receipt Date: 20120102
  Transmission Date: 20120608
  Serious: Yes (Death, Hospitalization)
  Sender: FDA-Public Use
  Company Number: AUR-APL-2012-00345

PATIENT
  Age: 24 Year
  Sex: Female

DRUGS (1)
  1. METFORMIN HCL [Suspect]
     Indication: PRODUCT USED FOR UNKNOWN INDICATION
     Dates: end: 20100101

REACTIONS (8)
  - DEHYDRATION [None]
  - COMPLETED SUICIDE [None]
  - HYPOTENSION [None]
  - ABDOMINAL DISCOMFORT [None]
  - ACIDOSIS [None]
  - TOXICITY TO VARIOUS AGENTS [None]
  - VOMITING [None]
  - HAEMODIALYSIS [None]
